FAERS Safety Report 7076502-9 (Version None)
Quarter: 2010Q4

REPORT INFORMATION
  Report Type: 
  Country: None (occurrence: None)
  Receive Date: 20101101
  Receipt Date: 20101018
  Transmission Date: 20110411
  Serious: Yes (Hospitalization)
  Sender: FDA-Public Use
  Company Number: US-ELI_LILLY_AND_COMPANY-US201010005713

PATIENT
  Age: 49 Year
  Sex: Female

DRUGS (4)
  1. ATOMOXETINE HCL [Suspect]
     Dosage: 1600 MG, UNK
  2. ZOLPIDEM [Concomitant]
  3. ALPRAZOLAM [Concomitant]
  4. ETHANOL [Concomitant]

REACTIONS (4)
  - ELECTROCARDIOGRAM QT PROLONGED [None]
  - INTENTIONAL OVERDOSE [None]
  - NAUSEA [None]
  - SUICIDAL BEHAVIOUR [None]
